FAERS Safety Report 4726995-4 (Version None)
Quarter: 2005Q3

REPORT INFORMATION
  Report Type: 
  Country: None (occurrence: None)
  Receive Date: 20050728
  Receipt Date: 20050706
  Transmission Date: 20060218
  Serious: Yes (Life-Threatening, Other)
  Sender: FDA-Public Use
  Company Number: GR-JNJFOC-20050700482

PATIENT
  Age: 48 Year
  Sex: Male
  Weight: 90 kg

DRUGS (8)
  1. REMICADE [Suspect]
     Route: 042
  2. REMICADE [Suspect]
     Dosage: RE-ADMINISTERED
     Route: 042
  3. REMICADE [Suspect]
     Route: 042
  4. REMICADE [Suspect]
     Dosage: 6TH INFUSION
     Route: 042
  5. REMICADE [Suspect]
     Indication: ANKYLOSING SPONDYLITIS
     Dosage: ADMINISTERED WEEK 0,2,6 THEN EVERY 6-8 WEEKS AS NEEDED
     Route: 042
  6. METHOTREXATE [Concomitant]
     Indication: ANKYLOSING SPONDYLITIS
     Dosage: NOT ADMINISTERED ON 6TH INFUSION
     Route: 048
  7. FENISTIL [Concomitant]
     Indication: PROPHYLAXIS
     Route: 042
  8. SOLU-CORTEF [Concomitant]
     Indication: PROPHYLAXIS
     Route: 042

REACTIONS (8)
  - ANKYLOSING SPONDYLITIS [None]
  - BLOOD PRESSURE DECREASED [None]
  - DRUG SPECIFIC ANTIBODY PRESENT [None]
  - HYPERHIDROSIS [None]
  - INFUSION RELATED REACTION [None]
  - PALLOR [None]
  - PULSE PRESSURE DECREASED [None]
  - TRANSIENT ISCHAEMIC ATTACK [None]
